FAERS Safety Report 8213140-6 (Version None)
Quarter: 2012Q1

REPORT INFORMATION
  Report Type: 
  Country: None (occurrence: None)
  Receive Date: 20120315
  Receipt Date: 20120308
  Transmission Date: 20120608
  Serious: Yes (Other)
  Sender: FDA-Public Use
  Company Number: US-PFIZER INC-2012063513

PATIENT
  Sex: Female

DRUGS (2)
  1. AMBRISENTAN [Suspect]
     Dosage: 10 MG, UNK
     Route: 048
     Dates: start: 20110820
  2. REVATIO [Suspect]
     Dosage: UNK
     Dates: end: 20120111

REACTIONS (3)
  - DEAFNESS [None]
  - EPISTAXIS [None]
  - VISUAL IMPAIRMENT [None]
